FAERS Safety Report 23600342 (Version 1)
Quarter: 2024Q1

REPORT INFORMATION
  Report Type: Spontaneous
  Country: GB (occurrence: GB)
  Receive Date: 20240306
  Receipt Date: 20240306
  Transmission Date: 20240410
  Serious: Yes (Other)
  Sender: FDA-Public Use
  Company Number: None

PATIENT
  Age: 64 Year
  Sex: Female
  Weight: 63 kg

DRUGS (1)
  1. CIPROFLOXACIN [Suspect]
     Active Substance: CIPROFLOXACIN
     Indication: Urinary tract infection
     Dosage: 250 MG
     Route: 048
     Dates: start: 20220401, end: 20220610

REACTIONS (7)
  - Glossodynia [Recovered/Resolved]
  - Blood folate decreased [None]
  - Angular cheilitis [None]
  - Gastrooesophageal reflux disease [None]
  - Ulcer [None]
  - Dysgeusia [None]
  - Dyspepsia [None]

NARRATIVE: CASE EVENT DATE: 20220601
